FAERS Safety Report 5465971-3 (Version None)
Quarter: 2007Q3

REPORT INFORMATION
  Report Type: 
  Country: None (occurrence: None)
  Receive Date: 20070924
  Receipt Date: 20070917
  Transmission Date: 20080115
  Serious: Yes (Hospitalization)
  Sender: FDA-Public Use
  Company Number: GB-ROXANE LABORATORIES, INC-2007-BP-21166RO

PATIENT
  Age: 34 Year
  Sex: Male

DRUGS (7)
  1. AZATHIOPRINE [Suspect]
     Indication: COLITIS ULCERATIVE
  2. PREDNISOLONE [Suspect]
     Indication: COLITIS ULCERATIVE
  3. MESALAZINE [Suspect]
     Indication: COLITIS ULCERATIVE
  4. MESALAZINE [Suspect]
  5. CEFUROXIME [Concomitant]
     Indication: EVIDENCE BASED TREATMENT
     Route: 042
  6. METRONIDAZOLE [Concomitant]
     Indication: EVIDENCE BASED TREATMENT
     Route: 042
  7. GANCICLOVIR [Concomitant]
     Indication: CYTOMEGALOVIRUS INFECTION
     Route: 042

REACTIONS (9)
  - C-REACTIVE PROTEIN INCREASED [None]
  - COLITIS [None]
  - CYTOMEGALOVIRUS COLITIS [None]
  - DIARRHOEA HAEMORRHAGIC [None]
  - HEPATITIS [None]
  - INFLAMMATORY BOWEL DISEASE [None]
  - LEUKOPENIA [None]
  - LIVER FUNCTION TEST ABNORMAL [None]
  - PYREXIA [None]
